FAERS Safety Report 13291214 (Version 1)
Quarter: 2017Q1

REPORT INFORMATION
  Report Type: Spontaneous
  Country: US (occurrence: US)
  Receive Date: 20170302
  Receipt Date: 20170302
  Transmission Date: 20170428
  Serious: No
  Sender: FDA-Public Use
  Company Number: US-PERRIGO-16US014120

PATIENT
  Sex: Male
  Weight: 95.24 kg

DRUGS (1)
  1. LOPERAMIDE HYDROCHLORIDE. [Suspect]
     Active Substance: LOPERAMIDE HYDROCHLORIDE
     Indication: DIARRHOEA
     Dosage: 4 MG AFTER FIRST LOOSE STOOL; 2 TO 4 MG AFTER EACH SUBSEQUENT LOOSE STOOL (7 OR 8 TIMES), DAILY
     Route: 048

REACTIONS (4)
  - Incorrect drug administration duration [Unknown]
  - Overdose [Unknown]
  - Dry mouth [Not Recovered/Not Resolved]
  - Inappropriate schedule of drug administration [Unknown]
